FAERS Safety Report 23425113 (Version 1)
Quarter: 2024Q1

REPORT INFORMATION
  Report Type: Spontaneous
  Country: US (occurrence: US)
  Receive Date: 20240121
  Receipt Date: 20240121
  Transmission Date: 20240410
  Serious: Yes (Death, Hospitalization, Other)
  Sender: FDA-Public Use
  Company Number: US-009507513-2401USA007643

PATIENT
  Age: 80 Year
  Sex: Male

DRUGS (11)
  1. KEYTRUDA [Suspect]
     Active Substance: PEMBROLIZUMAB
     Indication: Lung neoplasm malignant
     Dosage: UNK
     Route: 042
     Dates: end: 2023
  2. ENTRESTO [Concomitant]
     Active Substance: SACUBITRIL\VALSARTAN
  3. CARVEDILOL [Concomitant]
     Active Substance: CARVEDILOL
  4. ISOSORBIDE [Concomitant]
     Active Substance: ISOSORBIDE
  5. XARELTO [Concomitant]
     Active Substance: RIVAROXABAN
  6. ATORVASTATIN [Concomitant]
     Active Substance: ATORVASTATIN
  7. ALPRAZOLAM [Concomitant]
     Active Substance: ALPRAZOLAM
  8. TRAZODONE [Concomitant]
     Active Substance: TRAZODONE HYDROCHLORIDE
  9. PREDNISONE [Concomitant]
     Active Substance: PREDNISONE
  10. FUROSEMIDE [Concomitant]
     Active Substance: FUROSEMIDE
  11. TW ANTIFUNGAL [Concomitant]

REACTIONS (5)
  - Malignant neoplasm progression [Fatal]
  - Cerebrovascular accident [Fatal]
  - Pneumonia [Not Recovered/Not Resolved]
  - Ill-defined disorder [Not Recovered/Not Resolved]
  - Drug ineffective [Not Recovered/Not Resolved]

NARRATIVE: CASE EVENT DATE: 20230801
